FAERS Safety Report 11661874 (Version 1)
Quarter: 2015Q4

REPORT INFORMATION
  Report Type: Spontaneous
  Country: US (occurrence: None)
  Receive Date: 20151026
  Receipt Date: 20151026
  Transmission Date: 20160304
  Serious: Yes (Other)
  Sender: FDA-Public Use
  Company Number: US-MDT-ADR-2015-02028

PATIENT
  Age: 48 Year
  Sex: Male

DRUGS (2)
  1. CLONIDINE. [Suspect]
     Active Substance: CLONIDINE
     Indication: PAIN
     Dosage: 224.52 UG/DAY
  2. BACLOFEN INTRATHECAL [Suspect]
     Active Substance: BACLOFEN
     Indication: PAIN
     Dosage: 224.52 MCG/DAY

REACTIONS (11)
  - Drug withdrawal syndrome [None]
  - Malaise [None]
  - Pain [None]
  - Paraesthesia [None]
  - Rash [None]
  - Chest discomfort [None]
  - Vomiting [None]
  - Aphasia [None]
  - Muscle spasms [None]
  - Pruritus [None]
  - Dehydration [None]
